FAERS Safety Report 6075053-8 (Version None)
Quarter: 2009Q1

REPORT INFORMATION
  Report Type: 
  Country: None (occurrence: None)
  Receive Date: 20090212
  Receipt Date: 20090202
  Transmission Date: 20090719
  Serious: Yes (Hospitalization)
  Sender: FDA-Public Use
  Company Number: FR-NOVOPROD-282355

PATIENT
  Age: 60 Year
  Sex: Male

DRUGS (10)
  1. NOVOLOG MIX 70/30 [Suspect]
     Indication: TYPE 2 DIABETES MELLITUS
     Dosage: 54 (40+14) IU, QD
     Route: 058
     Dates: start: 20080820
  2. NOVOLOG MIX 70/30 [Suspect]
     Dosage: 54 (40+14) IU, QD
     Route: 058
  3. NOVORAPID [Suspect]
     Indication: TYPE 2 DIABETES MELLITUS
     Dosage: 8 IU, QD
     Route: 058
     Dates: start: 20080820
  4. NOVORAPID [Suspect]
     Dosage: 8 IU, QD
     Route: 058
  5. RIFINAH [Concomitant]
     Indication: PULMONARY TUBERCULOSIS
     Dosage: 2 DF, QD
     Route: 048
     Dates: start: 20081020
  6. NORSET [Concomitant]
     Dosage: 15 MG, QD
     Route: 048
     Dates: start: 20081010
  7. TAHOR [Concomitant]
     Dosage: 10 MG, QD
     Route: 048
     Dates: start: 20081010
  8. AMLOD [Concomitant]
     Dosage: 5 MG, QD
     Route: 048
     Dates: start: 20081010
  9. DAFALGAN                           /00020001/ [Concomitant]
     Indication: BONE PAIN
     Dosage: 4 G, QD
     Route: 048
     Dates: start: 20081010
  10. TOPALGIC                           /00599202/ [Concomitant]
     Indication: BONE PAIN
     Dosage: 200 MG, QD
     Route: 048
     Dates: start: 20081020

REACTIONS (4)
  - BLOOD GLUCOSE INCREASED [None]
  - CONVULSION [None]
  - HYPOGLYCAEMIA [None]
  - HYPOTHERMIA [None]
